FAERS Safety Report 6370250-6 (Version None)
Quarter: 2009Q3

REPORT INFORMATION
  Report Type: 
  Country: None (occurrence: None)
  Receive Date: 20090921
  Receipt Date: 20090921
  Transmission Date: 20100115
  Serious: No
  Sender: FDA-Public Use
  Company Number: None

PATIENT
  Sex: Female
  Weight: 61.2356 kg

DRUGS (2)
  1. ALENDRONATE SODIUM [Suspect]
     Indication: BONE DISORDER
     Dosage: 1 TABLET WEEKLY 1 WEEK FOR 4 MOS.
     Dates: start: 20090425, end: 20090625
  2. ALENDRONATE SODIUM [Suspect]
     Indication: OSTEOPOROSIS
     Dosage: 1 TABLET WEEKLY 1 WEEK FOR 4 MOS.
     Dates: start: 20090425, end: 20090625

REACTIONS (4)
  - GINGIVAL PAIN [None]
  - JAW DISORDER [None]
  - ULCER [None]
  - UNEVALUABLE EVENT [None]
